FAERS Safety Report 17772324 (Version 6)
Quarter: 2020Q4

REPORT INFORMATION
  Report Type: Report from Study
  Country: US (occurrence: US)
  Receive Date: 20200512
  Receipt Date: 20201007
  Transmission Date: 20210113
  Serious: No
  Sender: FDA-Public Use
  Company Number: NVSC2020US128515

PATIENT
  Sex: Female

DRUGS (2)
  1. COSENTYX [Suspect]
     Active Substance: SECUKINUMAB
     Indication: PSORIASIS
     Dosage: 300 MG, QMO
     Route: 058
  2. COSENTYX [Suspect]
     Active Substance: SECUKINUMAB
     Indication: PSORIATIC ARTHROPATHY
     Dosage: UNKNOWN
     Route: 065

REACTIONS (5)
  - Pain [Unknown]
  - Meniscus injury [Unknown]
  - Arthritis [Unknown]
  - Product dose omission issue [Unknown]
  - Psoriasis [Unknown]
